FAERS Safety Report 25236049 (Version 1)
Quarter: 2025Q2

REPORT INFORMATION
  Report Type: Spontaneous
  Country: JP (occurrence: JP)
  Receive Date: 20250424
  Receipt Date: 20250424
  Transmission Date: 20250717
  Serious: Yes (Other)
  Sender: GUERBET
  Company Number: JP-GUERBETG_JAPAN-JP-20250073

PATIENT
  Age: 8 Decade
  Sex: Female

DRUGS (2)
  1. LIPIODOL [Suspect]
     Active Substance: ETHIODIZED OIL
     Indication: Sclerotherapy
  2. HISTOACRYL [Suspect]
     Active Substance: ENBUCRILATE
     Indication: Sclerotherapy

REACTIONS (1)
  - Cerebral infarction [Recovering/Resolving]
